FAERS Safety Report 18512851 (Version 3)
Quarter: 2020Q4

REPORT INFORMATION
  Report Type: Spontaneous
  Country: US (occurrence: US)
  Receive Date: 20201117
  Receipt Date: 20201214
  Transmission Date: 20210114
  Serious: Yes (Hospitalization)
  Sender: FDA-Public Use
  Company Number: US-PARATEK PHARMACEUTICALS, INC.-2020PTK00268

PATIENT
  Age: 79 Year
  Sex: Female
  Weight: 57.37 kg

DRUGS (17)
  1. VITAMIN C [Concomitant]
     Active Substance: ASCORBIC ACID
     Dosage: UNK
     Dates: end: 2020
  2. BUMETANIDE. [Concomitant]
     Active Substance: BUMETANIDE
     Dosage: UNK, 1X/DAY
  3. SERTRALINE [Concomitant]
     Active Substance: SERTRALINE HYDROCHLORIDE
  4. IMDUR [Concomitant]
     Active Substance: ISOSORBIDE MONONITRATE
  5. RENAGEL [Concomitant]
     Active Substance: SEVELAMER HYDROCHLORIDE
  6. BUMETANIDE. [Concomitant]
     Active Substance: BUMETANIDE
     Dosage: UNK, 4X/DAY
  7. PREGABALIN. [Concomitant]
     Active Substance: PREGABALIN
  8. AMBIEN [Concomitant]
     Active Substance: ZOLPIDEM TARTRATE
  9. MULTIVITAMIN [Concomitant]
     Active Substance: VITAMINS
     Dosage: UNK
     Dates: end: 2020
  10. IRON [Concomitant]
     Active Substance: IRON
     Dosage: UNK
     Dates: end: 2020
  11. NUZYRA [Suspect]
     Active Substance: OMADACYCLINE
     Indication: URINARY TRACT INFECTION
  12. HYDROCHLOROTHIAZIDE. [Concomitant]
     Active Substance: HYDROCHLOROTHIAZIDE
  13. HYDRALAZINE [Concomitant]
     Active Substance: HYDRALAZINE HYDROCHLORIDE
  14. UNSPECIFIED PALLIATIVE MEDICATIONS [Concomitant]
  15. NUZYRA [Suspect]
     Active Substance: OMADACYCLINE
     Indication: MYCOBACTERIAL INFECTION
     Dosage: 450 MG, 1X/DAY
     Route: 048
     Dates: start: 20200511, end: 20200514
  16. ASPIRIN. [Concomitant]
     Active Substance: ASPIRIN
     Dosage: UNK
     Dates: end: 2020
  17. UNSPECIFIED VITAMINS [Concomitant]
     Active Substance: VITAMINS
     Dosage: UNK
     Dates: end: 2020

REACTIONS (6)
  - End stage renal disease [Not Recovered/Not Resolved]
  - Oxygen saturation decreased [Recovering/Resolving]
  - Off label use [Recovered/Resolved]
  - Cardiac disorder [Unknown]
  - Heart rate increased [Unknown]
  - Pulmonary oedema [Unknown]

NARRATIVE: CASE EVENT DATE: 2020
